FAERS Safety Report 9422395 (Version 1)
Quarter: 2013Q3

REPORT INFORMATION
  Report Type: Spontaneous
  Country: BR (occurrence: BR)
  Receive Date: 20130726
  Receipt Date: 20130726
  Transmission Date: 20140515
  Serious: Yes (Other)
  Sender: FDA-Public Use
  Company Number: BR-SANOFI-AVENTIS-2013SA072952

PATIENT
  Sex: Male
  Weight: 102 kg

DRUGS (10)
  1. LANTUS [Suspect]
     Indication: TYPE 2 DIABETES MELLITUS
     Route: 065
     Dates: start: 2003
  2. AUTOPEN 24 [Concomitant]
     Indication: DEVICE THERAPY
     Dates: start: 2003
  3. PANTOPRAZOLE SODIUM [Concomitant]
     Indication: GASTRIC DISORDER
     Dosage: STRENGTH: 40 MG
     Route: 048
     Dates: start: 2006
  4. DIGEPLUS [Concomitant]
     Indication: GASTRIC DISORDER
     Route: 048
     Dates: start: 2006
  5. SOMALGIN CARDIO [Concomitant]
     Indication: CARDIAC DISORDER
     Route: 048
     Dates: start: 2006
  6. METFORMIN HYDROCHLORIDE [Concomitant]
     Indication: TYPE 2 DIABETES MELLITUS
     Dosage: STRENGTH: 850 MG
     Route: 048
     Dates: start: 2006
  7. AMLODIPINE BESILATE [Concomitant]
     Indication: HYPERTENSION
     Dosage: STRENGTH: 5 MG
     Route: 048
     Dates: start: 2006
  8. GLIMEPIRIDE [Concomitant]
     Indication: TYPE 2 DIABETES MELLITUS
     Dosage: STRENGTH: 2 MG
     Route: 048
     Dates: start: 2006
  9. ROSUVASTATIN CALCIUM [Concomitant]
     Indication: HYPERCHOLESTEROLAEMIA
     Dosage: STRENGTH: 10 MG
     Route: 048
     Dates: start: 2006
  10. LOSARTAN POTASSIUM [Concomitant]
     Indication: HYPERTENSION
     Dosage: STRENGTH: 50 MG.
     Route: 048
     Dates: start: 2006

REACTIONS (3)
  - Cardiac disorder [Not Recovered/Not Resolved]
  - Tremor [Not Recovered/Not Resolved]
  - Injection site discolouration [Recovered/Resolved]
